FAERS Safety Report 13770924 (Version 2)
Quarter: 2017Q3

REPORT INFORMATION
  Report Type: Spontaneous
  Country: US (occurrence: US)
  Receive Date: 20170720
  Receipt Date: 20170728
  Transmission Date: 20171127
  Serious: Yes (Life-Threatening, Hospitalization, Other)
  Sender: FDA-Public Use
  Company Number: US-TORRENT-00003201

PATIENT
  Age: 72 Year
  Sex: Male
  Weight: 68 kg

DRUGS (8)
  1. ACICLOVIR [Suspect]
     Active Substance: ACYCLOVIR
  2. FENTANYL. [Suspect]
     Active Substance: FENTANYL
  3. METOPROLOL. [Suspect]
     Active Substance: METOPROLOL
  4. LISINOPRIL. [Suspect]
     Active Substance: LISINOPRIL
  5. RIVAROXABAN [Suspect]
     Active Substance: RIVAROXABAN
  6. DIGOXIN. [Suspect]
     Active Substance: DIGOXIN
  7. FLUOXETINE [Suspect]
     Active Substance: FLUOXETINE HYDROCHLORIDE
  8. TURMERIC [Suspect]
     Active Substance: HERBALS\TURMERIC

REACTIONS (4)
  - Toxicity to various agents [Recovered/Resolved]
  - Loss of consciousness [Recovered/Resolved]
  - Myoclonus [Recovered/Resolved]
  - Serotonin syndrome [Recovered/Resolved]
